FAERS Safety Report 22585744 (Version 1)
Quarter: 2023Q2

REPORT INFORMATION
  Report Type: Spontaneous
  Country: US (occurrence: US)
  Receive Date: 20230610
  Receipt Date: 20230610
  Transmission Date: 20230722
  Serious: Yes (Other)
  Sender: FDA-Public Use
  Company Number: US-JNJFOC-20230607449

PATIENT
  Sex: Female

DRUGS (3)
  1. STELARA [Suspect]
     Active Substance: USTEKINUMAB
     Indication: Product used for unknown indication
     Dosage: STRENGTH: 90MG/ML
     Route: 058
  2. STELARA [Suspect]
     Active Substance: USTEKINUMAB
  3. COPAXONE [Suspect]
     Active Substance: GLATIRAMER ACETATE
     Indication: Product used for unknown indication
     Route: 065

REACTIONS (3)
  - Multiple sclerosis relapse [Unknown]
  - Muscle spasms [Unknown]
  - Latent tuberculosis [Unknown]
